FAERS Safety Report 8289777-5 (Version None)
Quarter: 2012Q2

REPORT INFORMATION
  Report Type: 
  Country: None (occurrence: None)
  Receive Date: 20120417
  Receipt Date: 20120412
  Transmission Date: 20120825
  Serious: Yes (Other)
  Sender: FDA-Public Use
  Company Number: US-PFIZER INC-2012091519

PATIENT
  Sex: Female

DRUGS (3)
  1. LYRICA [Suspect]
     Indication: FIBROMYALGIA
     Dosage: 300 MG, DAILY
     Dates: end: 20120101
  2. LYRICA [Suspect]
     Dosage: 450 MG
     Dates: start: 20120101, end: 20120410
  3. LYRICA [Suspect]
     Dosage: 300 MG
     Dates: start: 20120411

REACTIONS (3)
  - INJURY [None]
  - GAIT DISTURBANCE [None]
  - PALPITATIONS [None]
